FAERS Safety Report 19294011 (Version 1)
Quarter: 2021Q2

REPORT INFORMATION
  Report Type: Spontaneous
  Country: US (occurrence: US)
  Receive Date: 20210524
  Receipt Date: 20210524
  Transmission Date: 20210717
  Serious: Yes (Hospitalization)
  Sender: FDA-Public Use
  Company Number: None

PATIENT
  Age: 55 Year
  Sex: Female

DRUGS (2)
  1. CIPROFLOXACN [Concomitant]
     Active Substance: CIPROFLOXACIN
  2. REPATHA [Suspect]
     Active Substance: EVOLOCUMAB
     Indication: TYPE IIA HYPERLIPIDAEMIA
     Route: 058
     Dates: start: 20200729

REACTIONS (2)
  - Product dose omission issue [None]
  - Hospitalisation [None]

NARRATIVE: CASE EVENT DATE: 20210501
